FAERS Safety Report 15931537 (Version 3)
Quarter: 2019Q1

REPORT INFORMATION
  Report Type: Spontaneous
  Country: FR (occurrence: FR)
  Receive Date: 20190207
  Receipt Date: 20190219
  Transmission Date: 20190417
  Serious: Yes (Other)
  Sender: FDA-Public Use
  Company Number: PHHY2019FR005659

PATIENT
  Age: 74 Year
  Sex: Female

DRUGS (7)
  1. BIMATOPROST. [Suspect]
     Active Substance: BIMATOPROST
     Dosage: UNK, QD
     Route: 047
  2. DORZOLAMIDE [Suspect]
     Active Substance: DORZOLAMIDE
     Indication: OPEN ANGLE GLAUCOMA
     Dosage: UNK UNK, BID
     Route: 047
  3. BIMATOPROST;TIMOLOL [Concomitant]
     Active Substance: BIMATOPROST\TIMOLOL
     Indication: OPEN ANGLE GLAUCOMA
     Dosage: UNK UNK, QD
     Route: 061
  4. BIMATOPROST. [Suspect]
     Active Substance: BIMATOPROST
     Indication: OPEN ANGLE GLAUCOMA
     Dosage: UNK UNK, QD
     Route: 061
  5. BRIMONIDINE TARTRATE (ALC) [Suspect]
     Active Substance: BRIMONIDINE TARTRATE
     Indication: OPEN ANGLE GLAUCOMA
     Dosage: UNK UNK, BID
     Route: 047
  6. ACETAZOLAMIDE. [Concomitant]
     Active Substance: ACETAZOLAMIDE
     Indication: OPEN ANGLE GLAUCOMA
     Dosage: 125 MG, TID
     Route: 048
  7. TIMOLOL + DORZOLAMIDA GENERIS [Concomitant]
     Indication: OPEN ANGLE GLAUCOMA
     Dosage: UNK UNK, BID
     Route: 065

REACTIONS (9)
  - Concomitant disease aggravated [Recovering/Resolving]
  - Allergic reaction to excipient [Recovering/Resolving]
  - Hyperaemia [Recovering/Resolving]
  - Conjunctival hyperaemia [Recovered/Resolved]
  - Ocular surface disease [Recovering/Resolving]
  - Blepharitis [Recovering/Resolving]
  - Toxicity to various agents [Recovering/Resolving]
  - Intraocular pressure increased [Recovering/Resolving]
  - Therapeutic response decreased [Unknown]
